FAERS Safety Report 20182435 (Version 1)
Quarter: 2021Q4

REPORT INFORMATION
  Report Type: Spontaneous
  Country: CN (occurrence: CN)
  Receive Date: 20211214
  Receipt Date: 20211214
  Transmission Date: 20220303
  Serious: Yes (Other)
  Sender: FDA-Public Use
  Company Number: CN-PFIZER INC-202101723262

PATIENT
  Age: 10 Year
  Sex: Male
  Weight: 41 kg

DRUGS (5)
  1. CYTARABINE [Suspect]
     Active Substance: CYTARABINE
     Indication: Precursor B-lymphoblastic lymphoma
     Dosage: 0.095 G, 1X/DAY
     Route: 041
     Dates: start: 20211027, end: 20211103
  2. CYCLOPHOSPHAMIDE [Concomitant]
     Active Substance: CYCLOPHOSPHAMIDE
     Indication: Precursor B-lymphoblastic lymphoma
     Dosage: 0.630000 G, 2X/DAY
     Route: 041
     Dates: start: 20211025, end: 20211025
  3. SODIUM CHLORIDE [Concomitant]
     Active Substance: SODIUM CHLORIDE
     Indication: Vehicle solution use
     Dosage: 100.000 ML, 1X/DAY
     Route: 041
     Dates: start: 20211027, end: 20211103
  4. OU BEI [Concomitant]
     Indication: Antiemetic supportive care
     Dosage: 4.000 MG, 1X/DAY
     Route: 041
     Dates: start: 20211025, end: 20211103
  5. DEXTROSE [Concomitant]
     Active Substance: DEXTROSE
     Indication: Vehicle solution use
     Dosage: 100.000 ML, 1X/DAY
     Route: 041
     Dates: start: 20211025, end: 20211103

REACTIONS (2)
  - Septic shock [Recovering/Resolving]
  - Pancreatitis acute [Recovering/Resolving]

NARRATIVE: CASE EVENT DATE: 20211105
